FAERS Safety Report 19273821 (Version 1)
Quarter: 2021Q2

REPORT INFORMATION
  Report Type: Spontaneous
  Country: US (occurrence: US)
  Receive Date: 20210519
  Receipt Date: 20210519
  Transmission Date: 20210717
  Serious: Yes (Hospitalization)
  Sender: FDA-Public Use
  Company Number: None

PATIENT
  Age: 69 Year
  Sex: Male
  Weight: 68.1 kg

DRUGS (8)
  1. DOXORUBICIN HYDROCHLORIDE. [Suspect]
     Active Substance: DOXORUBICIN HYDROCHLORIDE
     Dates: end: 20210424
  2. SPRYCEL [Suspect]
     Active Substance: DASATINIB
     Dates: end: 20210504
  3. CYTARABINE. [Suspect]
     Active Substance: CYTARABINE
     Dates: end: 20210422
  4. MESNA. [Suspect]
     Active Substance: MESNA
     Dates: end: 20210424
  5. DEXAMETHASON [Suspect]
     Active Substance: DEXAMETHASONE
     Dates: end: 20210503
  6. VINCRISTINE SULFATE. [Suspect]
     Active Substance: VINCRISTINE SULFATE
     Dates: end: 20210430
  7. CYCLOPHOSPHAMIDE. [Suspect]
     Active Substance: CYCLOPHOSPHAMIDE
     Dates: end: 20210424
  8. METHOTREXATE. [Suspect]
     Active Substance: METHOTREXATE

REACTIONS (6)
  - Dehydration [None]
  - Febrile neutropenia [None]
  - Malaise [None]
  - Constipation [None]
  - Abdominal pain [None]
  - Body temperature increased [None]

NARRATIVE: CASE EVENT DATE: 20210505
